FAERS Safety Report 18478158 (Version 1)
Quarter: 2020Q4

REPORT INFORMATION
  Report Type: Spontaneous
  Country: DE (occurrence: DE)
  Receive Date: 20201108
  Receipt Date: 20201108
  Transmission Date: 20210114
  Serious: Yes (Other)
  Sender: FDA-Public Use
  Company Number: DE-AUROBINDO-AUR-APL-2020-054833

PATIENT
  Age: 58 Year
  Sex: Male

DRUGS (1)
  1. TERBINAFINE. [Suspect]
     Active Substance: TERBINAFINE
     Indication: TRICHOPHYTOSIS
     Dosage: UNK
     Route: 065

REACTIONS (3)
  - Pathogen resistance [Unknown]
  - Treatment failure [Unknown]
  - Drug resistance [Unknown]
